FAERS Safety Report 5553346-8 (Version None)
Quarter: 2007Q4

REPORT INFORMATION
  Report Type: 
  Country: None (occurrence: None)
  Receive Date: 20071207
  Receipt Date: 20071207
  Transmission Date: 20080405
  Serious: No
  Sender: FDA-Public Use
  Company Number: None

PATIENT

DRUGS (1)
  1. TUBERCULIN SKIN TEST   5 TEST UNITS/ 0.1 ML   PARKEDALE PHARMACEUTICAL [Suspect]
     Dosage: 5 TEST UNITS  ONCE   ID
     Route: 023

REACTIONS (2)
  - INJECTION SITE VESICLES [None]
  - PHARMACEUTICAL PRODUCT COMPLAINT [None]
